FAERS Safety Report 16968294 (Version 1)
Quarter: 2019Q4

REPORT INFORMATION
  Report Type: Spontaneous
  Country: US (occurrence: US)
  Receive Date: 20191028
  Receipt Date: 20191028
  Transmission Date: 20200122
  Serious: No
  Sender: FDA-Public Use
  Company Number: US-JNJFOC-20191030314

PATIENT
  Sex: Female

DRUGS (1)
  1. TYLENOL 8 HR ARTHRITIS PAIN [Suspect]
     Active Substance: ACETAMINOPHEN
     Indication: PAIN
     Dosage: AS OF 15/OCT/2019 WAS INSTRUCTED TO TAKE IT EVERY 7 HOURS, LAST ADMINISTERED ON 17/OCT/2019
     Route: 065
     Dates: start: 201909

REACTIONS (4)
  - Nausea [Not Recovered/Not Resolved]
  - Adverse event [Unknown]
  - Inappropriate schedule of product administration [Unknown]
  - Off label use [Unknown]

NARRATIVE: CASE EVENT DATE: 2019
